FAERS Safety Report 24731254 (Version 1)
Quarter: 2024Q4

REPORT INFORMATION
  Report Type: Spontaneous
  Country: US (occurrence: US)
  Receive Date: 20241213
  Receipt Date: 20241213
  Transmission Date: 20250115
  Serious: No
  Sender: VIVUS
  Company Number: US-VIVUS LLC-2023V1001169

PATIENT
  Age: 48 Year
  Sex: Male
  Weight: 83.99 kg

DRUGS (1)
  1. PANCREAZE [Suspect]
     Active Substance: PANCRELIPASE AMYLASE\PANCRELIPASE LIPASE\PANCRELIPASE PROTEASE
     Indication: Abdominal distension
     Dosage: 4,200/14,200/24,600USP
     Route: 048
     Dates: end: 20231019

REACTIONS (1)
  - Hypoglycaemia [Unknown]

NARRATIVE: CASE EVENT DATE: 20231001
